FAERS Safety Report 6045577-8 (Version None)
Quarter: 2009Q1

REPORT INFORMATION
  Report Type: 
  Country: None (occurrence: None)
  Receive Date: 20090121
  Receipt Date: 20090115
  Transmission Date: 20090719
  Serious: Yes (Hospitalization)
  Sender: FDA-Public Use
  Company Number: FR-ASTRAZENECA-2009CG00207

PATIENT
  Age: 28262 Day
  Sex: Female

DRUGS (5)
  1. NEXIUM [Suspect]
     Route: 048
     Dates: start: 20081029
  2. PREVISCAN [Suspect]
     Route: 048
     Dates: start: 20081030, end: 20081103
  3. PREVISCAN [Suspect]
     Route: 048
     Dates: start: 20081107, end: 20081110
  4. SEREVENT [Suspect]
     Route: 055
  5. HEPARIN SODIUM [Suspect]
     Route: 042
     Dates: start: 20081029, end: 20081102

REACTIONS (1)
  - VASCULAR PURPURA [None]
